FAERS Safety Report 19809170 (Version 1)
Quarter: 2021Q3

REPORT INFORMATION
  Report Type: Spontaneous
  Country: AU (occurrence: AU)
  Receive Date: 20210908
  Receipt Date: 20210908
  Transmission Date: 20211014
  Serious: Yes (Other)
  Sender: FDA-Public Use
  Company Number: AU-JAZZ-2021-AU-016250

PATIENT
  Age: 80 Year
  Sex: Female

DRUGS (4)
  1. ASPARAGINASE [Suspect]
     Active Substance: ASPARAGINASE
     Indication: T-CELL LYMPHOMA
     Dosage: UNKNOWN DOSE AND FREQUENCY
     Route: 065
  2. METHOTREXATE. [Suspect]
     Active Substance: METHOTREXATE
     Indication: T-CELL LYMPHOMA
     Dosage: 50% REDUCED DOSE
  3. ETOPOSIDE. [Suspect]
     Active Substance: ETOPOSIDE
     Indication: T-CELL LYMPHOMA
     Dosage: 50% REDUCED DOSE
  4. IFOSFAMIDE. [Suspect]
     Active Substance: IFOSFAMIDE
     Indication: T-CELL LYMPHOMA
     Dosage: 50% REDUCED DOSE

REACTIONS (4)
  - Pulmonary embolism [Unknown]
  - Encephalopathy [Unknown]
  - Fluid overload [Unknown]
  - Tachycardia [Unknown]
